FAERS Safety Report 6240602-3 (Version None)
Quarter: 2009Q2

REPORT INFORMATION
  Report Type: 
  Country: None (occurrence: None)
  Receive Date: 20090623
  Receipt Date: 20081027
  Transmission Date: 20091009
  Serious: No
  Sender: FDA-Public Use
  Company Number: US-ASTRAZENECA-2008UW23923

PATIENT
  Age: 13 Month
  Sex: Male
  Weight: 7.7 kg

DRUGS (2)
  1. PULMICORT RESPULES [Suspect]
     Indication: ASTHMA
     Dosage: 0.25 MG/2 ML TWICE DAILY
     Route: 055
     Dates: start: 20081021
  2. ALBUTEROL [Concomitant]

REACTIONS (3)
  - IRRITABILITY [None]
  - RESTLESSNESS [None]
  - SLEEP DISORDER [None]
